FAERS Safety Report 7965484-0 (Version None)
Quarter: 2011Q4

REPORT INFORMATION
  Report Type: 
  Country: None (occurrence: None)
  Receive Date: 20111208
  Receipt Date: 20111130
  Transmission Date: 20120403
  Serious: Yes (Other)
  Sender: FDA-Public Use
  Company Number: US-JNJFOC-20111200717

PATIENT
  Sex: Female

DRUGS (2)
  1. XARELTO [Suspect]
     Indication: KNEE ARTHROPLASTY
     Route: 048
     Dates: start: 20111001, end: 20111001
  2. XARELTO [Suspect]
     Indication: THROMBOSIS PROPHYLAXIS
     Route: 048
     Dates: start: 20111001, end: 20111001

REACTIONS (3)
  - PULMONARY EMBOLISM [None]
  - ADVERSE EVENT [None]
  - TREATMENT NONCOMPLIANCE [None]
